FAERS Safety Report 8394017-2 (Version None)
Quarter: 2012Q2

REPORT INFORMATION
  Report Type: 
  Country: None (occurrence: None)
  Receive Date: 20120530
  Receipt Date: 20120516
  Transmission Date: 20120825
  Serious: Yes (Other)
  Sender: FDA-Public Use
  Company Number: SG-JNJFOC-20120520235

PATIENT
  Age: 7 Decade
  Sex: Female

DRUGS (3)
  1. ZYRTEC [Suspect]
     Indication: PRODUCT USED FOR UNKNOWN INDICATION
     Route: 048
     Dates: start: 20120301
  2. ZYRTEC [Suspect]
     Route: 048
  3. CHINESE MEDICATION [Concomitant]
     Route: 065

REACTIONS (2)
  - CHEST DISCOMFORT [None]
  - DYSPNOEA [None]
